FAERS Safety Report 13390710 (Version 1)
Quarter: 2017Q1

REPORT INFORMATION
  Report Type: Report from Study
  Country: US (occurrence: US)
  Receive Date: 20170331
  Receipt Date: 20170331
  Transmission Date: 20170429
  Serious: Yes (Hospitalization)
  Sender: FDA-Public Use
  Company Number: PHHY2015US041258

PATIENT
  Age: 53 Year
  Sex: Female

DRUGS (1)
  1. GILENYA [Suspect]
     Active Substance: FINGOLIMOD HYDROCHLORIDE
     Indication: MULTIPLE SCLEROSIS
     Dosage: UNK
     Route: 048

REACTIONS (7)
  - Pulmonary oedema [Recovered/Resolved]
  - Thyroid mass [Not Recovered/Not Resolved]
  - Back pain [Unknown]
  - Condition aggravated [Recovered/Resolved]
  - Muscular weakness [Recovered/Resolved]
  - Musculoskeletal stiffness [Unknown]
  - Pulmonary mass [Not Recovered/Not Resolved]

NARRATIVE: CASE EVENT DATE: 20151220
